FAERS Safety Report 20114268 (Version 6)
Quarter: 2022Q3

REPORT INFORMATION
  Report Type: Spontaneous
  Country: JP (occurrence: JP)
  Receive Date: 20211125
  Receipt Date: 20220702
  Transmission Date: 20221026
  Serious: Yes (Hospitalization, Other)
  Sender: FDA-Public Use
  Company Number: JP-UNITED THERAPEUTICS-UNT-2018-011647

PATIENT
  Sex: Female
  Weight: 85 kg

DRUGS (15)
  1. REMODULIN [Suspect]
     Active Substance: TREPROSTINIL
     Indication: Pulmonary arterial hypertension
     Dosage: UNK, CONTINUING (10.5 MCL/H)
     Route: 058
     Dates: start: 20180719, end: 201807
  2. REMODULIN [Suspect]
     Active Substance: TREPROSTINIL
     Dosage: 0.010 ?G/KG, CONTINUING
     Route: 058
     Dates: start: 201807
  3. REMODULIN [Suspect]
     Active Substance: TREPROSTINIL
     Dosage: 0.050 ?G/KG, CONTINUING
     Route: 058
     Dates: start: 2018, end: 20211214
  4. REPATHA [Concomitant]
     Active Substance: EVOLOCUMAB
     Indication: Type IIa hyperlipidaemia
     Dosage: UNK, QMO
     Route: 058
  5. ADCIRCA [Concomitant]
     Active Substance: TADALAFIL
     Indication: Pulmonary arterial hypertension
     Dosage: 40 MG, QD
     Route: 048
     Dates: start: 201604
  6. OPSUMIT [Concomitant]
     Active Substance: MACITENTAN
     Indication: Pulmonary arterial hypertension
     Dosage: 10 MG, QD
     Route: 048
     Dates: start: 201604
  7. UPTRAVI [Concomitant]
     Active Substance: SELEXIPAG
     Indication: Pulmonary arterial hypertension
     Dosage: 3.2 MG, QD
     Route: 048
     Dates: start: 201701, end: 20180720
  8. REVATIO [Concomitant]
     Active Substance: SILDENAFIL CITRATE
     Indication: Pulmonary arterial hypertension
     Dosage: 60 MG, QD
     Route: 048
     Dates: start: 201607
  9. SAMSCA [Concomitant]
     Active Substance: TOLVAPTAN
     Indication: Pulmonary arterial hypertension
     Dosage: UNK
     Route: 048
  10. FUROSEMIDE [Concomitant]
     Active Substance: FUROSEMIDE
     Indication: Product used for unknown indication
     Dosage: UNK
     Route: 048
  11. FEBUXOSTAT [Concomitant]
     Active Substance: FEBUXOSTAT
     Indication: Product used for unknown indication
     Dosage: UNK
     Route: 048
  12. SPIRONOLACTONE [Concomitant]
     Active Substance: SPIRONOLACTONE
     Indication: Product used for unknown indication
     Dosage: UNK
     Route: 048
  13. NAUZELIN [Concomitant]
     Active Substance: DOMPERIDONE
     Indication: Prophylaxis
     Dosage: UNK
     Route: 048
     Dates: start: 20181221
  14. CODEINE PHOSPHATE [Concomitant]
     Active Substance: CODEINE PHOSPHATE
     Indication: Prophylaxis
     Dosage: 6 GRAM, QD
     Route: 048
     Dates: start: 20181002
  15. LOXOPROFEN [Concomitant]
     Active Substance: LOXOPROFEN
     Indication: Prophylaxis
     Dosage: 3 DF/DAY
     Route: 048
     Dates: start: 20180720

REACTIONS (34)
  - Altered state of consciousness [Unknown]
  - Injection site reaction [Unknown]
  - Injection site swelling [Recovering/Resolving]
  - Injection site erythema [Not Recovered/Not Resolved]
  - Injection site warmth [Recovering/Resolving]
  - Injection site pain [Not Recovered/Not Resolved]
  - Injection site induration [Not Recovered/Not Resolved]
  - Headache [Not Recovered/Not Resolved]
  - Nausea [Recovering/Resolving]
  - Diarrhoea [Recovering/Resolving]
  - Malaise [Unknown]
  - Dizziness [Recovering/Resolving]
  - Epistaxis [Unknown]
  - Hypoaesthesia [Recovering/Resolving]
  - Dermatitis allergic [Unknown]
  - Peripheral venous disease [Unknown]
  - Catheter site extravasation [Unknown]
  - Gastroenteritis [Unknown]
  - Injection site infection [Unknown]
  - Pruritus [Unknown]
  - Dermatitis allergic [Unknown]
  - Injection site discharge [Unknown]
  - Decreased appetite [Recovering/Resolving]
  - Weight decreased [Recovering/Resolving]
  - Injection site reaction [Unknown]
  - Injection site pruritus [Recovering/Resolving]
  - Injection site haemorrhage [Unknown]
  - Injection site infection [Unknown]
  - Injection site discolouration [Unknown]
  - Injection site ulcer [Unknown]
  - Lymphadenopathy [Recovered/Resolved]
  - Swelling [Unknown]
  - Malabsorption [Unknown]
  - Unintentional medical device removal [Unknown]

NARRATIVE: CASE EVENT DATE: 20180101
